FAERS Safety Report 7073785-6 (Version None)
Quarter: 2010Q4

REPORT INFORMATION
  Report Type: 
  Country: None (occurrence: None)
  Receive Date: 20101029
  Receipt Date: 20100816
  Transmission Date: 20110411
  Serious: No
  Sender: FDA-Public Use
  Company Number: A0876119A

PATIENT
  Age: 79 Year
  Sex: Female

DRUGS (7)
  1. ADVAIR DISKUS 100/50 [Suspect]
     Indication: PRODUCT USED FOR UNKNOWN INDICATION
     Dosage: 1PUFF TWICE PER DAY
     Route: 055
     Dates: start: 20100201, end: 20100701
  2. DIABETES MEDICATION [Concomitant]
  3. UNKNOWN MEDICATION [Concomitant]
  4. BLOOD PRESSURE MEDICATION [Concomitant]
  5. ASPIRIN [Concomitant]
  6. VITAMIN D3 [Concomitant]
  7. SALINE [Concomitant]

REACTIONS (1)
  - LUNG DISORDER [None]
